FAERS Safety Report 6232096-9 (Version None)
Quarter: 2009Q2

REPORT INFORMATION
  Report Type: 
  Country: None (occurrence: None)
  Receive Date: 20090616
  Receipt Date: 20090611
  Transmission Date: 20091009
  Serious: Yes (Death)
  Sender: FDA-Public Use
  Company Number: FR-SANOFI-SYNTHELABO-A02200901525

PATIENT
  Sex: Male

DRUGS (11)
  1. NEXIUM [Concomitant]
     Dosage: UNK
     Route: 065
  2. SOLU-MEDROL [Suspect]
     Indication: PREMEDICATION
     Route: 042
     Dates: start: 20081104, end: 20081104
  3. ONDANSETRON HCL [Suspect]
     Indication: PREMEDICATION
     Route: 042
     Dates: start: 20081104, end: 20081104
  4. ACUPAN [Suspect]
     Indication: DRUG USE FOR UNKNOWN INDICATION
     Dosage: 3 UNIT
     Route: 042
     Dates: start: 20081104
  5. AVASTIN [Suspect]
     Indication: COLON CANCER METASTATIC
     Route: 041
     Dates: start: 20081106, end: 20081106
  6. AUGMENTIN [Concomitant]
     Dosage: UNK
     Route: 065
  7. FLUOROURACILE DAKOTA PHARM [Suspect]
     Indication: COLON CANCER METASTATIC
     Route: 041
     Dates: start: 20081104, end: 20081105
  8. TAVANIC [Concomitant]
     Dosage: UNK
     Route: 065
  9. LASIX [Concomitant]
     Dosage: UNK
     Route: 065
  10. ELOXATIN [Suspect]
     Indication: COLON CANCER METASTATIC
     Route: 041
     Dates: start: 20081104, end: 20081104
  11. PRIMPERAN [Suspect]
     Indication: PREMEDICATION
     Route: 042
     Dates: start: 20081104, end: 20081104

REACTIONS (1)
  - MYOCARDIAL INFARCTION [None]
